FAERS Safety Report 8383375 (Version 7)
Quarter: 2013Q1

REPORT INFORMATION
  Report Type: Spontaneous
  Country: US (occurrence: US)
  Receive Date: 20120201
  Receipt Date: 20130329
  Transmission Date: 20140127
  Serious: Yes (Life-Threatening, Hospitalization, Other)
  Sender: FDA-Public Use
  Company Number: US-GLAXOSMITHKLINE-A0963839A

PATIENT
  Age: 17 Year
  Sex: Male

DRUGS (5)
  1. FLOLAN [Suspect]
     Indication: PULMONARY HYPERTENSION
     Dosage: 308NGKM CONTINUOUS
     Route: 042
     Dates: start: 19991112, end: 20130203
  2. TRACLEER [Concomitant]
     Dates: end: 20130203
  3. LASIX [Concomitant]
     Dates: end: 20130203
  4. COUMADIN [Concomitant]
     Dates: end: 20130104
  5. SILDENAFIL [Concomitant]

REACTIONS (5)
  - Pneumonia [Recovering/Resolving]
  - Staphylococcal infection [Recovering/Resolving]
  - Lung transplant [Recovered/Resolved]
  - Haemoptysis [Recovered/Resolved]
  - Pulmonary haemorrhage [Recovered/Resolved]
